FAERS Safety Report 6295713-3 (Version None)
Quarter: 2009Q3

REPORT INFORMATION
  Report Type: 
  Country: None (occurrence: None)
  Receive Date: 20090803
  Receipt Date: 20090803
  Transmission Date: 20100115
  Serious: Yes (Hospitalization)
  Sender: FDA-Public Use
  Company Number: None

PATIENT
  Sex: Female
  Weight: 69 kg

DRUGS (5)
  1. CISPLATIN [Suspect]
     Dosage: 180 MG
  2. DOXORUBICIN HCL [Suspect]
     Dosage: 90 MG
  3. ETOPOSIDE [Suspect]
     Dosage: 540 MG
  4. G-CSF (FILGRASTIM,AMGEN) [Suspect]
     Dosage: 1520 MG
  5. MITOTANE [Suspect]
     Dosage: 5600 MG

REACTIONS (12)
  - ANXIETY [None]
  - BLOOD POTASSIUM DECREASED [None]
  - BLOOD POTASSIUM INCREASED [None]
  - CARDIAC ARREST [None]
  - FLUID OVERLOAD [None]
  - HYPOXIA [None]
  - OEDEMA [None]
  - PANCREATITIS [None]
  - PNEUMONIA [None]
  - PULMONARY OEDEMA [None]
  - RESPIRATORY DISTRESS [None]
  - WEANING FAILURE [None]
